FAERS Safety Report 5794151-7 (Version None)
Quarter: 2008Q2

REPORT INFORMATION
  Report Type: 
  Country: None (occurrence: None)
  Receive Date: 20080627
  Receipt Date: 20080618
  Transmission Date: 20081010
  Serious: Yes (Disabling)
  Sender: FDA-Public Use
  Company Number: US-MERCK-0806USA07708

PATIENT
  Sex: Female

DRUGS (2)
  1. ZOCOR [Suspect]
     Indication: BLOOD CHOLESTEROL INCREASED
     Route: 048
     Dates: start: 20080501
  2. ACTOS [Suspect]
     Indication: TYPE 2 DIABETES MELLITUS
     Route: 048
     Dates: start: 20080501

REACTIONS (6)
  - DYSPNOEA [None]
  - GAIT DISTURBANCE [None]
  - HEART RATE IRREGULAR [None]
  - NONSPECIFIC REACTION [None]
  - PALPITATIONS [None]
  - RASH [None]
